FAERS Safety Report 25761064 (Version 1)
Quarter: 2025Q3

REPORT INFORMATION
  Report Type: Spontaneous
  Country: US (occurrence: US)
  Receive Date: 20250904
  Receipt Date: 20250904
  Transmission Date: 20251020
  Serious: No
  Sender: ELI LILLY AND COMPANY
  Company Number: US-ELI_LILLY_AND_COMPANY-US202509001460

PATIENT
  Age: 37 Year
  Sex: Female
  Weight: 136 kg

DRUGS (2)
  1. HUMALOG [Suspect]
     Active Substance: INSULIN LISPRO
     Indication: Product used for unknown indication
     Route: 065
  2. LANTUS [Concomitant]
     Active Substance: INSULIN GLARGINE
     Indication: Product used for unknown indication
     Route: 065

REACTIONS (4)
  - Hyperhidrosis [Unknown]
  - Thirst [Unknown]
  - Taste disorder [Unknown]
  - Tremor [Unknown]

NARRATIVE: CASE EVENT DATE: 20250805
